FAERS Safety Report 25476465 (Version 1)
Quarter: 2025Q2

REPORT INFORMATION
  Report Type: Spontaneous
  Country: US (occurrence: US)
  Receive Date: 20250625
  Receipt Date: 20250625
  Transmission Date: 20250717
  Serious: Yes (Other)
  Sender: pharmaAND
  Company Number: US-Pharmaand-2025000600

PATIENT
  Age: 52 Year
  Sex: Female

DRUGS (1)
  1. RUBRACA [Suspect]
     Active Substance: RUCAPARIB CAMSYLATE
     Indication: Ovarian cancer
     Dosage: TWO 300MG TABLETS TWICE DAILY
     Route: 048
     Dates: end: 20250507

REACTIONS (1)
  - Liver injury [Unknown]
